FAERS Safety Report 15319917 (Version 4)
Quarter: 2020Q2

REPORT INFORMATION
  Report Type: Report from Study
  Country: ES (occurrence: ES)
  Receive Date: 20180827
  Receipt Date: 20200410
  Transmission Date: 20200713
  Serious: Yes (Death, Other)
  Sender: FDA-Public Use
  Company Number: ES-ROCHE-2171198

PATIENT

DRUGS (9)
  1. ANTITHYMOCYTE IMMUNOGLOBULIN (RABBIT) [Suspect]
     Active Substance: LAPINE T-LYMPHOCYTE IMMUNE GLOBULIN
     Indication: PROPHYLAXIS AGAINST TRANSPLANT REJECTION
     Dosage: TOTAL DOSE {/=6 MG/KG
     Route: 065
  2. MYCOPHENOLATE SODIUM [Suspect]
     Active Substance: MYCOPHENOLATE SODIUM
     Indication: PROPHYLAXIS AGAINST TRANSPLANT REJECTION
     Route: 065
  3. PREDNISOLONE. [Suspect]
     Active Substance: PREDNISOLONE
     Indication: PROPHYLAXIS AGAINST TRANSPLANT REJECTION
     Route: 065
  4. BASILIXIMAB [Suspect]
     Active Substance: BASILIXIMAB
     Indication: PROPHYLAXIS AGAINST TRANSPLANT REJECTION
     Dosage: 2 DOSES X ON DAYS 0 AND 4
     Route: 065
  5. TACROLIMUS. [Suspect]
     Active Substance: TACROLIMUS
     Indication: PROPHYLAXIS AGAINST TRANSPLANT REJECTION
     Route: 065
  6. MYCOPHENOLATE MOFETIL. [Suspect]
     Active Substance: MYCOPHENOLATE MOFETIL
     Dosage: IN PATIENTS RECEIVING TACROLIMUS BUT NOT THOSE GIVEN CSA.
     Route: 065
  7. MYCOPHENOLATE MOFETIL. [Suspect]
     Active Substance: MYCOPHENOLATE MOFETIL
     Indication: PROPHYLAXIS AGAINST TRANSPLANT REJECTION
     Route: 065
  8. MYCOPHENOLATE SODIUM [Suspect]
     Active Substance: MYCOPHENOLATE SODIUM
     Dosage: IN PATIENTS RECEIVING TACROLIMUS BUT NOT THOSE GIVEN CSA.
     Route: 065
  9. CYCLOSPORINE. [Suspect]
     Active Substance: CYCLOSPORINE
     Indication: PROPHYLAXIS AGAINST TRANSPLANT REJECTION
     Route: 065

REACTIONS (34)
  - Hypokalaemia [Unknown]
  - Neoplasm malignant [Unknown]
  - Nausea [Unknown]
  - Renal failure [Unknown]
  - Transplant rejection [Unknown]
  - Renal impairment [Unknown]
  - Polyomavirus-associated nephropathy [Unknown]
  - Pulmonary embolism [Unknown]
  - Oedema peripheral [Unknown]
  - Myocardial ischaemia [Unknown]
  - Tremor [Unknown]
  - Insomnia [Unknown]
  - Cardiac failure [Unknown]
  - Anaemia [Unknown]
  - Thrombocytopenia [Unknown]
  - Gastrointestinal ulcer [Unknown]
  - Stomatitis [Unknown]
  - Thrombotic microangiopathy [Unknown]
  - Cytomegalovirus infection [Unknown]
  - Embolism [Unknown]
  - Hyperkalaemia [Unknown]
  - Mouth ulceration [Unknown]
  - Vomiting [Unknown]
  - Diabetes mellitus [Unknown]
  - Wound infection [Unknown]
  - Haemolytic uraemic syndrome [Unknown]
  - Proteinuria [Unknown]
  - Cardiac arrest [Fatal]
  - Interstitial lung disease [Unknown]
  - Acute kidney injury [Unknown]
  - Deep vein thrombosis [Unknown]
  - Hyperlipidaemia [Unknown]
  - Pleural effusion [Unknown]
  - Gastrointestinal disorder [Fatal]
